FAERS Safety Report 9473183 (Version 1)
Quarter: 2013Q3

REPORT INFORMATION
  Report Type: Spontaneous
  Country: US (occurrence: US)
  Receive Date: 20130823
  Receipt Date: 20130823
  Transmission Date: 20140515
  Serious: Yes (Other)
  Sender: FDA-Public Use
  Company Number: US-ABBOTT-13P-163-1134218-00

PATIENT
  Sex: Female
  Weight: 86.26 kg

DRUGS (11)
  1. HUMIRA [Suspect]
     Indication: CROHN^S DISEASE
     Dates: start: 2007, end: 201202
  2. HUMIRA [Suspect]
     Dates: start: 201202
  3. DURAGESIC [Concomitant]
     Indication: PAIN
  4. DURAGESIC [Concomitant]
     Indication: CROHN^S DISEASE
  5. HYDROCORTISONE [Concomitant]
     Indication: ADRENAL INSUFFICIENCY
  6. SYNTHROID [Concomitant]
     Indication: HYPOTHYROIDISM
  7. MAGNESIUM [Concomitant]
     Indication: BLOOD MAGNESIUM DECREASED
  8. PREDNISONE [Concomitant]
     Indication: POLYMYALGIA RHEUMATICA
  9. EVISTA [Concomitant]
     Indication: OSTEOPOROSIS
  10. EFFEXOR [Concomitant]
     Indication: DEPRESSION
  11. HYDROCHLOROTHIAZIDE [Concomitant]
     Indication: NEPHROLITHIASIS

REACTIONS (3)
  - Dyspnoea [Not Recovered/Not Resolved]
  - Cardiac failure [Not Recovered/Not Resolved]
  - Ejection fraction abnormal [Unknown]
